FAERS Safety Report 10158540 (Version 4)
Quarter: 2014Q3

REPORT INFORMATION
  Report Type: Spontaneous
  Country: DE (occurrence: DE)
  Receive Date: 20140507
  Receipt Date: 20140703
  Transmission Date: 20150326
  Serious: Yes (Life-Threatening, Other)
  Sender: FDA-Public Use
  Company Number: PHHY2014DE055063

PATIENT
  Age: 86 Year
  Sex: Male

DRUGS (15)
  1. AMLODIPINE [Concomitant]
     Active Substance: AMLODIPINE BESYLATE
  2. VITAMIN B [Concomitant]
     Active Substance: VITAMIN B
  3. ALLOPURINOL. [Concomitant]
     Active Substance: ALLOPURINOL
  4. DELIX [Concomitant]
     Active Substance: RAMIPRIL
  5. TEBONIN [Concomitant]
     Indication: TINNITUS
  6. VIGANTOLETTEN [Concomitant]
     Active Substance: CHOLECALCIFEROL
  7. ORTOTON [Concomitant]
     Indication: SPINAL DISORDER
     Dosage: UNK
  8. BISOPROLOL [Concomitant]
     Active Substance: BISOPROLOL
  9. MAGNESIUM [Concomitant]
     Active Substance: MAGNESIUM
  10. EXELON PATCH [Suspect]
     Active Substance: RIVASTIGMINE
     Indication: DEMENTIA ALZHEIMER^S TYPE
     Dosage: 4.6 MG/24 HRS, QD
     Route: 062
     Dates: start: 201312
  11. EXELON PATCH [Suspect]
     Active Substance: RIVASTIGMINE
     Dosage: 9.5/24 HRS DAILY
     Route: 062
     Dates: start: 20140420
  12. CALCIUM FLUORATUM D [Concomitant]
  13. DUODART [Concomitant]
     Active Substance: DUTASTERIDE\TAMSULOSIN
  14. SIMVASTATIN. [Concomitant]
     Active Substance: SIMVASTATIN
  15. MEMANTINE [Concomitant]
     Active Substance: MEMANTINE
     Dosage: 10 MG, UNK
     Dates: start: 201402

REACTIONS (6)
  - Drug administration error [Recovered/Resolved]
  - Fear of death [Recovering/Resolving]
  - Visual impairment [Unknown]
  - Asthenia [Recovering/Resolving]
  - Fall [Recovering/Resolving]
  - Disorientation [Recovering/Resolving]

NARRATIVE: CASE EVENT DATE: 20140408
